FAERS Safety Report 22077517 (Version 15)
Quarter: 2024Q1

REPORT INFORMATION
  Report Type: Report from Study
  Country: BR (occurrence: BR)
  Receive Date: 20230309
  Receipt Date: 20240201
  Transmission Date: 20240410
  Serious: Yes (Hospitalization, Other)
  Sender: FDA-Public Use
  Company Number: BR-TAKEDA-2023TUS022144

PATIENT
  Age: 57 Year
  Sex: Female
  Weight: 85 kg

DRUGS (17)
  1. ANTI-INHIBITOR COAGULANT COMPLEX [Suspect]
     Active Substance: ANTI-INHIBITOR COAGULANT COMPLEX
     Indication: Factor VIII deficiency
     Dosage: 10000 INTERNATIONAL UNIT, QD
     Route: 065
     Dates: start: 20221223
  2. ANTI-INHIBITOR COAGULANT COMPLEX [Suspect]
     Active Substance: ANTI-INHIBITOR COAGULANT COMPLEX
     Indication: Acquired haemophilia
     Dosage: 9000 INTERNATIONAL UNIT, QD
     Route: 042
  3. ANTI-INHIBITOR COAGULANT COMPLEX [Suspect]
     Active Substance: ANTI-INHIBITOR COAGULANT COMPLEX
     Dosage: UNK UNK, BID
     Route: 042
  4. ANTI-INHIBITOR COAGULANT COMPLEX [Suspect]
     Active Substance: ANTI-INHIBITOR COAGULANT COMPLEX
     Dosage: 900 INTERNATIONAL UNIT, QD
     Route: 042
  5. ANTI-INHIBITOR COAGULANT COMPLEX [Suspect]
     Active Substance: ANTI-INHIBITOR COAGULANT COMPLEX
     Dosage: 300 MILLIGRAM
     Route: 042
  6. ANTI-INHIBITOR COAGULANT COMPLEX [Suspect]
     Active Substance: ANTI-INHIBITOR COAGULANT COMPLEX
     Dosage: UNK UNK, QD
     Route: 042
  7. ANTI-INHIBITOR COAGULANT COMPLEX [Suspect]
     Active Substance: ANTI-INHIBITOR COAGULANT COMPLEX
     Dosage: 500 INTERNATIONAL UNIT
     Route: 042
  8. ANTI-INHIBITOR COAGULANT COMPLEX [Suspect]
     Active Substance: ANTI-INHIBITOR COAGULANT COMPLEX
     Dosage: 8000 INTERNATIONAL UNIT
     Route: 042
  9. ANTI-INHIBITOR COAGULANT COMPLEX [Suspect]
     Active Substance: ANTI-INHIBITOR COAGULANT COMPLEX
     Dosage: 10000 INTERNATIONAL UNIT, QD
     Route: 042
  10. ANTI-INHIBITOR COAGULANT COMPLEX [Suspect]
     Active Substance: ANTI-INHIBITOR COAGULANT COMPLEX
     Dosage: UNK
     Route: 042
  11. ANTI-INHIBITOR COAGULANT COMPLEX [Suspect]
     Active Substance: ANTI-INHIBITOR COAGULANT COMPLEX
     Dosage: UNK UNK, QD
     Route: 042
     Dates: start: 202301, end: 202310
  12. RITUXIMAB [Suspect]
     Active Substance: RITUXIMAB
     Indication: Product used for unknown indication
     Dosage: UNK UNK, 1/WEEK
     Route: 065
  13. PREDNISONE [Suspect]
     Active Substance: PREDNISONE
     Indication: Product used for unknown indication
     Dosage: 5 DOSAGE FORM, QD
     Route: 065
  14. CYCLOPHOSPHAMIDE [Concomitant]
     Active Substance: CYCLOPHOSPHAMIDE
     Dosage: 2 DOSAGE FORM
     Route: 065
  15. AMITRIPTYLINE [Concomitant]
     Active Substance: AMITRIPTYLINE
     Dosage: UNK
     Route: 065
  16. CLONAZEPAM [Concomitant]
     Active Substance: CLONAZEPAM
     Dosage: 2 MILLIGRAM
     Route: 065
  17. PHENOBARBITAL [Concomitant]
     Active Substance: PHENOBARBITAL
     Dosage: 10 MILLIGRAM
     Route: 065

REACTIONS (37)
  - Haemorrhage [Recovered/Resolved]
  - Skin discolouration [Unknown]
  - Tongue haemorrhage [Not Recovered/Not Resolved]
  - Haematoma [Unknown]
  - Ecchymosis [Recovering/Resolving]
  - Injection site haematoma [Unknown]
  - Vein rupture [Unknown]
  - Injection site haemorrhage [Unknown]
  - Blood disorder [Unknown]
  - Erysipelas [Unknown]
  - Haemarthrosis [Unknown]
  - Contusion [Unknown]
  - Decreased immune responsiveness [Unknown]
  - Renal colic [Unknown]
  - Oedema [Unknown]
  - Arthralgia [Unknown]
  - Asthenia [Recovering/Resolving]
  - Myalgia [Unknown]
  - Swelling [Unknown]
  - Pain [Unknown]
  - Muscular weakness [Unknown]
  - Poor venous access [Unknown]
  - Emotional disorder [Unknown]
  - Rash macular [Unknown]
  - Vision blurred [Unknown]
  - Blood pressure increased [Unknown]
  - Activated partial thromboplastin time prolonged [Unknown]
  - Abdominal distension [Unknown]
  - Weight increased [Unknown]
  - Treatment noncompliance [Unknown]
  - Infection [Unknown]
  - Furuncle [Unknown]
  - Nausea [Unknown]
  - Malaise [Unknown]
  - Product use complaint [Unknown]
  - Product administration error [Unknown]
  - Inappropriate schedule of product administration [Unknown]

NARRATIVE: CASE EVENT DATE: 20230412
